FAERS Safety Report 18217648 (Version 1)
Quarter: 2020Q3

REPORT INFORMATION
  Report Type: Other
  Country: CN (occurrence: CN)
  Receive Date: 20200901
  Receipt Date: 20200901
  Transmission Date: 20201103
  Serious: Yes (Other)
  Sender: FDA-Public Use
  Company Number: CN-ROCHE-2667010

PATIENT

DRUGS (3)
  1. PACLITAXEL. [Suspect]
     Active Substance: PACLITAXEL
     Indication: CERVIX CARCINOMA
     Route: 042
  2. CARBOPLATIN. [Suspect]
     Active Substance: CARBOPLATIN
     Indication: CERVIX CARCINOMA
     Dosage: INTRAVENOUS 6 MG/ML/MIN AREA UNDER THE CURVE
     Route: 042
  3. BEVACIZUMAB. [Suspect]
     Active Substance: BEVACIZUMAB
     Indication: CERVIX CARCINOMA
     Route: 042

REACTIONS (11)
  - Neutropenia [Unknown]
  - Hypertension [Unknown]
  - Neuropathy peripheral [Unknown]
  - Pulmonary haemorrhage [Unknown]
  - Gastrointestinal fistula [Unknown]
  - Leukopenia [Unknown]
  - Gastrointestinal perforation [Unknown]
  - Anaemia [Unknown]
  - Thrombocytopenia [Unknown]
  - Embolism [Unknown]
  - Proteinuria [Unknown]
